FAERS Safety Report 8998104 (Version 1)
Quarter: 2013Q1

REPORT INFORMATION
  Report Type: Spontaneous
  Country: DE (occurrence: DE)
  Receive Date: 20130104
  Receipt Date: 20130104
  Transmission Date: 20140127
  Serious: Yes (Hospitalization)
  Sender: FDA-Public Use
  Company Number: DE-UCBSA-074108

PATIENT
  Age: 38 Year
  Sex: Female
  Weight: 60 kg

DRUGS (3)
  1. VIMPAT [Suspect]
     Dosage: 2 TABLETS (100), TOTAL AMOUNT: 200 MG
     Dates: start: 20121225
  2. LAMICTAL [Suspect]
     Dosage: TOTAL AMOUNT: 800 MG
     Dates: start: 20121225
  3. APYDAN EXTENT [Suspect]
     Dosage: STRENGTH: 150 EXTENDED RELEASE
     Dates: start: 20121225

REACTIONS (2)
  - Accidental exposure to product [Unknown]
  - Dizziness [Unknown]
